FAERS Safety Report 9402424 (Version 1)
Quarter: 2013Q3

REPORT INFORMATION
  Report Type: Spontaneous
  Country: GB (occurrence: GB)
  Receive Date: 20130716
  Receipt Date: 20130716
  Transmission Date: 20140515
  Serious: Yes (Other)
  Sender: FDA-Public Use
  Company Number: GB-PFIZER INC-2013205999

PATIENT
  Age: 60 Year
  Sex: Female
  Weight: 77.5 kg

DRUGS (1)
  1. IBUPROFEN [Suspect]
     Dosage: UNK MG, UNK

REACTIONS (1)
  - Gastrointestinal haemorrhage [Unknown]
